FAERS Safety Report 5422557-4 (Version None)
Quarter: 2007Q3

REPORT INFORMATION
  Report Type: 
  Country: None (occurrence: None)
  Receive Date: 20070822
  Receipt Date: 20070817
  Transmission Date: 20080115
  Serious: Yes (Hospitalization)
  Sender: FDA-Public Use
  Company Number: US-ELI_LILLY_AND_COMPANY-US200708003763

PATIENT
  Age: 45 Year
  Sex: Female

DRUGS (11)
  1. GEMZAR [Suspect]
     Indication: PANCREATIC CARCINOMA
     Dosage: 1770 MG, UNK
     Dates: start: 20070531, end: 20070718
  2. GEMZAR [Suspect]
     Dosage: 1000 MG, UNK
     Dates: start: 20070718, end: 20070808
  3. MSIR [Concomitant]
  4. ALBUTEROL [Concomitant]
  5. MIRALAX [Concomitant]
  6. REGLAN [Concomitant]
  7. COMPAZINE /00013304/ [Concomitant]
  8. ALOXI [Concomitant]
     Indication: SUPPLEMENTATION THERAPY
  9. DECADRON [Concomitant]
     Indication: SUPPLEMENTATION THERAPY
  10. TARCEVA [Concomitant]
     Indication: PANCREATIC CARCINOMA
     Dosage: 100 MG, UNK
     Dates: start: 20070531, end: 20070808
  11. TAXOTERE [Concomitant]
     Indication: PANCREATIC CARCINOMA
     Dates: start: 20070718, end: 20070718

REACTIONS (1)
  - CARDIOMYOPATHY [None]
